FAERS Safety Report 13085646 (Version 2)
Quarter: 2017Q1

REPORT INFORMATION
  Report Type: Report from Study
  Country: None (occurrence: US)
  Receive Date: 20170104
  Receipt Date: 20170124
  Transmission Date: 20170428
  Serious: Yes (Other)
  Sender: FDA-Public Use
  Company Number: US-ABBVIE-16K-163-1821191-00

PATIENT
  Age: 34 Year
  Sex: Female
  Weight: 67.65 kg

DRUGS (2)
  1. HUMIRA [Suspect]
     Active Substance: ADALIMUMAB
     Indication: CROHN^S DISEASE
     Route: 058
     Dates: start: 201001, end: 201611
  2. HUMIRA [Suspect]
     Active Substance: ADALIMUMAB
     Route: 058
     Dates: start: 20161205

REACTIONS (8)
  - Injection site papule [Recovered/Resolved]
  - Proctalgia [Recovering/Resolving]
  - Drug level decreased [Recovering/Resolving]
  - Device issue [Unknown]
  - Gastrointestinal infection [Recovering/Resolving]
  - Incorrect dose administered [Unknown]
  - Intestinal fistula [Recovering/Resolving]
  - Rectal discharge [Recovering/Resolving]

NARRATIVE: CASE EVENT DATE: 20161005
